FAERS Safety Report 13200286 (Version 2)
Quarter: 2017Q1

REPORT INFORMATION
  Report Type: Report from Study
  Country: None (occurrence: IT)
  Receive Date: 20170208
  Receipt Date: 20170214
  Transmission Date: 20170428
  Serious: Yes (Death, Hospitalization)
  Sender: FDA-Public Use
  Company Number: IT-ABBVIE-17P-083-1865294-00

PATIENT
  Age: 77 Year
  Sex: Female

DRUGS (1)
  1. DUODOPA [Suspect]
     Active Substance: CARBIDOPA\LEVODOPA
     Indication: PARKINSON^S DISEASE
     Dosage: MD 3,8 +3 ??CR 2,6??ED 2
     Route: 050
     Dates: start: 20130205, end: 20170124

REACTIONS (3)
  - General physical health deterioration [Fatal]
  - Malaise [Unknown]
  - Dehydration [Fatal]

NARRATIVE: CASE EVENT DATE: 20170130
